FAERS Safety Report 6151967-5 (Version None)
Quarter: 2009Q2

REPORT INFORMATION
  Report Type: 
  Country: None (occurrence: None)
  Receive Date: 20090408
  Receipt Date: 20090313
  Transmission Date: 20091009
  Serious: Yes (Disabling)
  Sender: FDA-Public Use
  Company Number: 2009-0346

PATIENT
  Sex: Female

DRUGS (1)
  1. LANREOTIDE AUTOGEL (LANREOTIDE ACETATE) (LANREOTIDE ACETATE) [Suspect]
     Indication: ACROMEGALY

REACTIONS (1)
  - BACK PAIN [None]
